FAERS Safety Report 22812797 (Version 2)
Quarter: 2023Q4

REPORT INFORMATION
  Report Type: Spontaneous
  Country: PL (occurrence: PL)
  Receive Date: 20230811
  Receipt Date: 20231109
  Transmission Date: 20240109
  Serious: Yes (Other)
  Sender: FDA-Public Use
  Company Number: PL-JNJFOC-20230815410

PATIENT
  Age: 65 Year
  Sex: Female

DRUGS (19)
  1. DARZALEX [Suspect]
     Active Substance: DARATUMUMAB
     Indication: Plasma cell myeloma
     Dosage: CYCLE 1
     Route: 058
     Dates: start: 20230105
  2. DARZALEX [Suspect]
     Active Substance: DARATUMUMAB
     Dosage: CYCLE 2
     Route: 058
     Dates: start: 20230202
  3. DARZALEX [Suspect]
     Active Substance: DARATUMUMAB
     Dosage: CYCLE 3
     Route: 058
     Dates: start: 20230302
  4. VELCADE [Suspect]
     Active Substance: BORTEZOMIB
     Indication: Plasma cell myeloma
     Dosage: CYCLE 1
     Route: 065
     Dates: start: 20230105
  5. VELCADE [Suspect]
     Active Substance: BORTEZOMIB
     Dosage: CYCLE 2
     Route: 065
     Dates: start: 20230202
  6. VELCADE [Suspect]
     Active Substance: BORTEZOMIB
     Dosage: CYCLE 3
     Route: 058
     Dates: start: 20230302
  7. THALIDOMIDE [Suspect]
     Active Substance: THALIDOMIDE
     Indication: Plasma cell myeloma
     Route: 065
     Dates: start: 20230105
  8. THALIDOMIDE [Suspect]
     Active Substance: THALIDOMIDE
     Dosage: CYCLE 2
     Route: 065
     Dates: start: 20230202
  9. THALIDOMIDE [Suspect]
     Active Substance: THALIDOMIDE
     Dosage: CYCLE 3
     Route: 065
     Dates: start: 20230302
  10. THALIDOMIDE [Suspect]
     Active Substance: THALIDOMIDE
     Dosage: CYCLE 4
     Route: 065
     Dates: start: 20230330, end: 20230427
  11. DEXAMETHASONE [Suspect]
     Active Substance: DEXAMETHASONE
     Indication: Plasma cell myeloma
     Dosage: CYCLE 1
     Route: 065
     Dates: start: 20230105
  12. DEXAMETHASONE [Suspect]
     Active Substance: DEXAMETHASONE
     Dosage: CYCLE 2
     Route: 065
     Dates: start: 20230202
  13. DEXAMETHASONE [Suspect]
     Active Substance: DEXAMETHASONE
     Dosage: CYCLE 3
     Route: 065
     Dates: start: 20230302
  14. DEXAMETHASONE [Suspect]
     Active Substance: DEXAMETHASONE
     Dosage: CYCLE 4
     Route: 065
     Dates: start: 20230330, end: 20230427
  15. HASCOVIR [Concomitant]
  16. ACCARDIUM [Concomitant]
     Route: 048
  17. CALCIUM CARBONATE\CHOLECALCIFEROL [Concomitant]
     Active Substance: CALCIUM CARBONATE\CHOLECALCIFEROL
  18. ZOMIKOS [Concomitant]
  19. DENOSUMAB [Concomitant]
     Active Substance: DENOSUMAB
     Route: 058

REACTIONS (1)
  - Clostridium difficile colitis [Unknown]
